FAERS Safety Report 5702656-X (Version None)
Quarter: 2008Q2

REPORT INFORMATION
  Report Type: 
  Country: None (occurrence: None)
  Receive Date: 20080411
  Receipt Date: 20071116
  Transmission Date: 20081010
  Serious: No
  Sender: FDA-Public Use
  Company Number: US-ASTRAZENECA-2007UW26464

PATIENT
  Sex: Female

DRUGS (6)
  1. ATENOLOL [Suspect]
     Route: 048
  2. NEXIUM [Suspect]
     Route: 048
  3. CRESTOR [Suspect]
     Route: 048
  4. EMBLEX [Concomitant]
  5. COUMADIN [Concomitant]
  6. ACTONEL [Concomitant]

REACTIONS (1)
  - HERPES ZOSTER [None]
